FAERS Safety Report 6615321-1 (Version None)
Quarter: 2010Q1

REPORT INFORMATION
  Report Type: 
  Country: None (occurrence: None)
  Receive Date: 20100305
  Receipt Date: 20091111
  Transmission Date: 20100710
  Serious: No
  Sender: FDA-Public Use
  Company Number: A0796243A

PATIENT
  Age: 60 Year
  Sex: Male
  Weight: 98.2 kg

DRUGS (8)
  1. REQUIP [Suspect]
     Indication: RESTLESS LEGS SYNDROME
     Route: 048
     Dates: start: 20050101, end: 20071201
  2. LIPITOR [Concomitant]
  3. EFFEXOR [Concomitant]
  4. TRICOR [Concomitant]
  5. KLONOPIN [Concomitant]
  6. PROTONIX [Concomitant]
  7. FLOMAX [Concomitant]
  8. TESTOSTERONE [Concomitant]

REACTIONS (1)
  - GAMBLING [None]
